FAERS Safety Report 16245171 (Version 1)
Quarter: 2019Q2

REPORT INFORMATION
  Report Type: Spontaneous
  Country: NL (occurrence: SE)
  Receive Date: 20190426
  Receipt Date: 20190426
  Transmission Date: 20190711
  Serious: Yes (Life-Threatening, Hospitalization, Disabling)
  Sender: FDA-Public Use
  Company Number: SE-FRESENIUS KABI-FK201904632

PATIENT
  Sex: Female

DRUGS (2)
  1. PROPOFOL (MANUFACTURER UNKNOWN) [Suspect]
     Active Substance: PROPOFOL
     Indication: SEDATIVE THERAPY
     Dosage: TOTAL 170 MG
     Route: 042
     Dates: start: 20190226, end: 20190226
  2. ALFENTANIL HYDROCHLORIDE. [Suspect]
     Active Substance: ALFENTANIL HYDROCHLORIDE
     Indication: SEDATIVE THERAPY
     Dosage: TOTAL 0,6 MG
     Route: 042
     Dates: start: 20190226, end: 20190226

REACTIONS (2)
  - Circulatory collapse [Not Recovered/Not Resolved]
  - Postoperative respiratory failure [Not Recovered/Not Resolved]

NARRATIVE: CASE EVENT DATE: 20190226
